FAERS Safety Report 7407587-5 (Version None)
Quarter: 2011Q2

REPORT INFORMATION
  Report Type: 
  Country: None (occurrence: None)
  Receive Date: 20110412
  Receipt Date: 20110328
  Transmission Date: 20111010
  Serious: Yes (Death, Hospitalization, Other)
  Sender: FDA-Public Use
  Company Number: US-CELGENEUS-163-21880-11033287

PATIENT
  Age: 85 Year
  Sex: Female

DRUGS (14)
  1. REVLIMID [Suspect]
     Indication: MULTIPLE MYELOMA
     Dosage: 15 MILLIGRAM
     Route: 048
     Dates: start: 20110131, end: 20110220
  2. BISACODYL [Concomitant]
     Route: 065
  3. LEVOTHROID [Concomitant]
     Route: 065
  4. METOPROLOL TARTRATE [Concomitant]
     Route: 065
  5. DOCUSATE [Concomitant]
     Route: 065
  6. FUROSEMIDE [Concomitant]
     Route: 065
  7. FEROSOL [Concomitant]
     Route: 065
  8. PROAIR HFA [Concomitant]
     Route: 065
  9. QVAR 40 [Concomitant]
     Route: 065
  10. REVLIMID [Suspect]
     Indication: TONGUE AMYLOIDOSIS
  11. ACETAMINOPHEN [Concomitant]
     Route: 065
  12. TRAZODONE [Concomitant]
     Route: 065
  13. SENNA [Concomitant]
     Route: 065
  14. SPIRIVA [Concomitant]
     Route: 065

REACTIONS (5)
  - FEMORAL NECK FRACTURE [None]
  - CHRONIC OBSTRUCTIVE PULMONARY DISEASE [None]
  - ATRIAL FIBRILLATION [None]
  - DEATH [None]
  - CEREBROVASCULAR ACCIDENT [None]
